FAERS Safety Report 15735741 (Version 1)
Quarter: 2018Q4

REPORT INFORMATION
  Report Type: Spontaneous
  Country: NO (occurrence: NO)
  Receive Date: 20181218
  Receipt Date: 20181218
  Transmission Date: 20190205
  Serious: Yes (Life-Threatening, Disabling)
  Sender: FDA-Public Use
  Company Number: NO-ELI_LILLY_AND_COMPANY-NO201812005953

PATIENT
  Age: 63 Year
  Sex: Female
  Weight: 91 kg

DRUGS (1)
  1. ZYPREXA [Suspect]
     Active Substance: OLANZAPINE
     Indication: PRODUCT USED FOR UNKNOWN INDICATION
     Dosage: 10 MG, DAILY
     Route: 048
     Dates: start: 20180901

REACTIONS (12)
  - Rhabdomyolysis [Not Recovered/Not Resolved]
  - Frequent bowel movements [Not Recovered/Not Resolved]
  - Cardiac failure [Not Recovered/Not Resolved]
  - Loss of libido [Unknown]
  - Urine output increased [Not Recovered/Not Resolved]
  - Breast enlargement [Not Recovered/Not Resolved]
  - Flatulence [Not Recovered/Not Resolved]
  - Blood urine present [Not Recovered/Not Resolved]
  - Alopecia [Not Recovered/Not Resolved]
  - Mental impairment [Not Recovered/Not Resolved]
  - Quality of life decreased [Unknown]
  - Weight increased [Not Recovered/Not Resolved]

NARRATIVE: CASE EVENT DATE: 20180901
